FAERS Safety Report 7043105-1 (Version None)
Quarter: 2010Q3

REPORT INFORMATION
  Report Type: 
  Country: None (occurrence: None)
  Receive Date: 20100920
  Receipt Date: 20100623
  Transmission Date: 20110219
  Serious: No
  Sender: FDA-Public Use
  Company Number: US-WYE-H16140410

PATIENT
  Age: 66 Year
  Sex: Female
  Weight: 79.45 kg

DRUGS (12)
  1. PRISTIQ [Suspect]
     Indication: DEPRESSION
     Dosage: 50 MG 1X PER 1 DAY
     Dates: start: 20100622
  2. MOBIC [Concomitant]
  3. BENADRYL [Concomitant]
  4. IBUPROFEN [Concomitant]
  5. TRAUMEEL S (HOMEOPATICS NOS) [Concomitant]
  6. ZANTAC [Concomitant]
  7. TRAMADOL HCL [Concomitant]
  8. ACIPHEX [Concomitant]
  9. COMBIVENT [Concomitant]
  10. WELLBUTRIN [Concomitant]
  11. TRILEPTAL [Concomitant]
  12. CLONAZEPAM [Concomitant]

REACTIONS (13)
  - ANORGASMIA [None]
  - ASTHENIA [None]
  - CONDITION AGGRAVATED [None]
  - DIZZINESS [None]
  - DRY MOUTH [None]
  - EXPIRED DRUG ADMINISTERED [None]
  - EYE PAIN [None]
  - FATIGUE [None]
  - HEADACHE [None]
  - HYPERSOMNIA [None]
  - MUSCLE TIGHTNESS [None]
  - MYDRIASIS [None]
  - SOMNOLENCE [None]
